FAERS Safety Report 7789962-2 (Version None)
Quarter: 2011Q3

REPORT INFORMATION
  Report Type: 
  Country: None (occurrence: None)
  Receive Date: 20110930
  Receipt Date: 20110613
  Transmission Date: 20111222
  Serious: No
  Sender: FDA-Public Use
  Company Number: US-ASTRAZENECA-2008UW04801

PATIENT
  Age: 869 Month
  Sex: Female
  Weight: 62.6 kg

DRUGS (10)
  1. SPIRONOLACTONE [Concomitant]
     Indication: FLUID RETENTION
  2. VITAMIN D [Concomitant]
  3. HTN MEDICATION [Concomitant]
     Indication: HYPERTENSION
  4. THYROID MEDICATION [Concomitant]
     Indication: HYPOTHYROIDISM
  5. ARMOUR [Concomitant]
  6. MELATONIN [Concomitant]
  7. CALCIUM CARBONATE [Concomitant]
  8. ARIMIDEX [Suspect]
     Route: 048
     Dates: start: 20100101
  9. COREG [Concomitant]
  10. ARIMIDEX [Suspect]
     Indication: BREAST CANCER
     Route: 048
     Dates: start: 20071001, end: 20100101

REACTIONS (8)
  - MUSCLE SPASMS [None]
  - NAUSEA [None]
  - BLOOD PRESSURE INCREASED [None]
  - OSTEOARTHRITIS [None]
  - MYALGIA [None]
  - ARTHRALGIA [None]
  - PAIN IN EXTREMITY [None]
  - PAIN [None]
